FAERS Safety Report 13464904 (Version 1)
Quarter: 2017Q2

REPORT INFORMATION
  Report Type: Spontaneous
  Country: FR (occurrence: FR)
  Receive Date: 20170420
  Receipt Date: 20170420
  Transmission Date: 20170830
  Serious: Yes (Life-Threatening, Hospitalization, Other)
  Sender: FDA-Public Use
  Company Number: FR-BAXTER-2017BAX016583

PATIENT
  Age: 59 Year
  Sex: Male

DRUGS (3)
  1. ENDOXAN 50 MG, COMPRIM? ENROB? [Suspect]
     Active Substance: CYCLOPHOSPHAMIDE
     Indication: WALDENSTROM^S MACROGLOBULINAEMIA
     Dosage: FIRST COURSE
     Route: 048
     Dates: start: 20170109, end: 20170109
  2. MABTHERA [Suspect]
     Active Substance: RITUXIMAB
     Indication: WALDENSTROM^S MACROGLOBULINAEMIA
     Dosage: FIRST COURSE
     Route: 042
     Dates: start: 20170109, end: 20170109
  3. OXYGEN. [Concomitant]
     Active Substance: OXYGEN
     Indication: PRODUCT USED FOR UNKNOWN INDICATION
     Route: 055
     Dates: start: 20170110

REACTIONS (8)
  - Interstitial lung disease [Recovered/Resolved]
  - Candida infection [Unknown]
  - Pleural effusion [Unknown]
  - Cardiac failure [Unknown]
  - Acute pulmonary oedema [Recovered/Resolved]
  - Diffuse alveolar damage [Unknown]
  - Diastolic dysfunction [Unknown]
  - Respiratory distress [Recovered/Resolved]

NARRATIVE: CASE EVENT DATE: 20170111
